FAERS Safety Report 9187060 (Version 1)
Quarter: 2012Q4

REPORT INFORMATION
  Report Type: Report from Study
  Country: US (occurrence: US)
  Receive Date: 20121101
  Receipt Date: 20121101
  Transmission Date: 20130627
  Serious: Yes (Other)
  Sender: FDA-Public Use
  Company Number: US-ABBOTT-12P-163-1000263-00

PATIENT
  Age: 24 Year
  Sex: Female

DRUGS (4)
  1. HUMIRA [Suspect]
     Indication: RHEUMATOID ARTHRITIS
     Dates: start: 2009, end: 201112
  2. HUMIRA [Suspect]
     Dates: start: 201205
  3. BIRTH CONTROL PILL [Concomitant]
     Indication: PRODUCT USED FOR UNKNOWN INDICATION
     Dosage: Daily
  4. TYLENOL [Concomitant]
     Indication: PAIN

REACTIONS (11)
  - Nasal septum deviation [Unknown]
  - Sinusitis [Unknown]
  - Lymphadenitis [Recovered/Resolved]
  - Arthralgia [Unknown]
  - Pain [Unknown]
  - Joint swelling [Unknown]
  - Arthralgia [Unknown]
  - Joint range of motion decreased [Unknown]
  - Device malfunction [Unknown]
  - Injection site oedema [Recovered/Resolved]
  - Incorrect dose administered [Unknown]
